FAERS Safety Report 10844464 (Version 5)
Quarter: 2015Q2

REPORT INFORMATION
  Report Type: Spontaneous
  Country: US (occurrence: US)
  Receive Date: 20150220
  Receipt Date: 20150420
  Transmission Date: 20150821
  Serious: Yes (Death, Hospitalization)
  Sender: FDA-Public Use
  Company Number: US-PFIZER INC-2015065433

PATIENT
  Age: 75 Year
  Sex: Male
  Weight: 58.5 kg

DRUGS (1)
  1. VFEND [Suspect]
     Active Substance: VORICONAZOLE
     Dosage: 200 MG, UNK

REACTIONS (5)
  - Pneumonia [Unknown]
  - Asthma [Unknown]
  - Death [Fatal]
  - Chronic obstructive pulmonary disease [Unknown]
  - Lung disorder [Unknown]

NARRATIVE: CASE EVENT DATE: 20150324
